FAERS Safety Report 16644142 (Version 1)
Quarter: 2019Q3

REPORT INFORMATION
  Report Type: Spontaneous
  Country: US (occurrence: US)
  Receive Date: 20190729
  Receipt Date: 20190729
  Transmission Date: 20191004
  Serious: Yes (Other)
  Sender: FDA-Public Use
  Company Number: US-BAYER-2019-137263

PATIENT
  Sex: Female

DRUGS (3)
  1. ACETYLSALICYLIC ACID (CARDIO) [Suspect]
     Active Substance: ASPIRIN
     Indication: HELLP SYNDROME
  2. LOW MOLECULAR WEIGHT HEPARIN [Suspect]
     Active Substance: UNSPECIFIED INGREDIENT
  3. ACETYLSALICYLIC ACID (CARDIO) [Suspect]
     Active Substance: ASPIRIN
     Indication: THROMBOTIC MICROANGIOPATHY
     Dosage: UNK

REACTIONS (4)
  - Off label use [None]
  - Product use in unapproved indication [None]
  - Foetal death [None]
  - Maternal exposure during pregnancy [None]
